FAERS Safety Report 6814467-2 (Version None)
Quarter: 2010Q3

REPORT INFORMATION
  Report Type: 
  Country: None (occurrence: None)
  Receive Date: 20100702
  Receipt Date: 20100623
  Transmission Date: 20110219
  Serious: Yes (Other)
  Sender: FDA-Public Use
  Company Number: PHHY2010US29247

PATIENT
  Sex: Female

DRUGS (3)
  1. RECLAST [Suspect]
     Dosage: UNK
     Dates: start: 20100101
  2. CALCIUM CARBONATE [Concomitant]
  3. VITAMIN D [Concomitant]

REACTIONS (1)
  - ANKLE FRACTURE [None]
